FAERS Safety Report 13735531 (Version 2)
Quarter: 2017Q3

REPORT INFORMATION
  Report Type: Spontaneous
  Country: US (occurrence: US)
  Receive Date: 20170710
  Receipt Date: 20170717
  Transmission Date: 20171127
  Serious: No
  Sender: FDA-Public Use
  Company Number: US-PFIZER INC-2017290112

PATIENT
  Age: 71 Year
  Sex: Female

DRUGS (2)
  1. ENBREL [Suspect]
     Active Substance: ETANERCEPT
     Dosage: UNK
  2. METHOTREXATE SODIUM. [Suspect]
     Active Substance: METHOTREXATE SODIUM
     Dosage: UNK

REACTIONS (16)
  - Cough [Unknown]
  - Peripheral swelling [Unknown]
  - Musculoskeletal stiffness [Unknown]
  - Fatigue [Unknown]
  - Headache [Unknown]
  - Injection site reaction [Unknown]
  - Pain in extremity [Unknown]
  - Gingival bleeding [Unknown]
  - Dry mouth [Unknown]
  - Joint swelling [Unknown]
  - Nasal dryness [Unknown]
  - Initial insomnia [Unknown]
  - Seasonal allergy [Unknown]
  - Drug ineffective [Unknown]
  - Arthralgia [Unknown]
  - Nodule [Unknown]
